FAERS Safety Report 4690087-3 (Version None)
Quarter: 2005Q2

REPORT INFORMATION
  Report Type: 
  Country: None (occurrence: None)
  Receive Date: 20050614
  Receipt Date: 20050531
  Transmission Date: 20051028
  Serious: No
  Sender: FDA-Public Use
  Company Number: BRO-008623

PATIENT
  Age: 43 Year
  Sex: Female

DRUGS (6)
  1. IOPAMIDOL-370 [Suspect]
     Indication: ANGIOGRAM
     Dosage: 30 ML, IV
     Route: 042
     Dates: start: 20050425, end: 20050425
  2. IOPAMIDOL-370 [Suspect]
     Indication: VENOUS STENOSIS
     Dosage: 30 ML, IV
     Route: 042
     Dates: start: 20050425, end: 20050425
  3. ZYLORIC ^GLAXO WELLCOME^ (ALLOPURINOL) [Concomitant]
  4. ROCALTROL [Concomitant]
  5. SODUIM BICARBONATE [Concomitant]
  6. LAC B (LACTOBACILLUS BIFIDUS, LYOPHILIZED) [Concomitant]

REACTIONS (5)
  - DEPRESSED LEVEL OF CONSCIOUSNESS [None]
  - HYPOCALCAEMIA [None]
  - HYPOMAGNESAEMIA [None]
  - NAUSEA [None]
  - TETANY [None]
